FAERS Safety Report 16886329 (Version 2)
Quarter: 2019Q4

REPORT INFORMATION
  Report Type: Spontaneous
  Country: DE (occurrence: DE)
  Receive Date: 20191004
  Receipt Date: 20191018
  Transmission Date: 20200122
  Serious: Yes (Other)
  Sender: FDA-Public Use
  Company Number: DE-TOLMAR, INC.-19DE000382

PATIENT
  Age: 70 Year
  Sex: Male

DRUGS (3)
  1. BICALUTAMIDE. [Concomitant]
     Active Substance: BICALUTAMIDE
     Indication: PRODUCT USED FOR UNKNOWN INDICATION
     Dosage: UNK
     Dates: start: 20190410, end: 20190424
  2. ELIGARD [Suspect]
     Active Substance: LEUPROLIDE ACETATE
     Indication: PROSTATE CANCER
     Dosage: 22.5 MG, 3 MONTHS DEPOT
     Route: 058
     Dates: start: 20190417
  3. ELIGARD [Suspect]
     Active Substance: LEUPROLIDE ACETATE
     Dosage: 22.5 MG, 3 MONTHS DEPOT
     Route: 058
     Dates: start: 20190716

REACTIONS (3)
  - Injection site induration [Unknown]
  - Injection site nodule [Unknown]
  - Haemangioma of liver [Unknown]

NARRATIVE: CASE EVENT DATE: 20190830
